FAERS Safety Report 21281146 (Version 1)
Quarter: 2022Q3

REPORT INFORMATION
  Report Type: Spontaneous
  Country: US (occurrence: US)
  Receive Date: 20220901
  Receipt Date: 20220901
  Transmission Date: 20221027
  Serious: Yes (Death)
  Sender: FDA-Public Use
  Company Number: US-PFIZER INC-202201091391

PATIENT
  Age: 49 Year

DRUGS (2)
  1. TRIMETHOBENZAMIDE HYDROCHLORIDE [Suspect]
     Active Substance: TRIMETHOBENZAMIDE HYDROCHLORIDE
     Dosage: UNK
  2. ACETAMINOPHEN\HYDROCODONE [Suspect]
     Active Substance: ACETAMINOPHEN\HYDROCODONE
     Dosage: UNK

REACTIONS (1)
  - Completed suicide [Fatal]
